FAERS Safety Report 5513877-3 (Version None)
Quarter: 2007Q4

REPORT INFORMATION
  Report Type: 
  Country: None (occurrence: None)
  Receive Date: 20071105
  Receipt Date: 20070919
  Transmission Date: 20080405
  Serious: No
  Sender: FDA-Public Use
  Company Number: SPV1-2007-04229

PATIENT
  Age: 78 Year
  Sex: Female
  Weight: 77.1 kg

DRUGS (6)
  1. FOSRENOL [Suspect]
     Indication: RENAL FAILURE
     Dosage: 1000 MG, TX/DAY:QD, ORAL
     Route: 048
     Dates: start: 20070918, end: 20070919
  2. LIPITOR [Concomitant]
  3. TOPROL-XL [Concomitant]
  4. CLONIDINE [Concomitant]
  5. NORVASC                           /00972401/ (AMLODIPINE) [Concomitant]
  6. ASPELLIN                        (ACETYLSALICYLIC ACID, CAMPHOR, MENTHO [Concomitant]

REACTIONS (3)
  - DIARRHOEA [None]
  - NAUSEA [None]
  - VOMITING [None]
